FAERS Safety Report 6836584-3 (Version None)
Quarter: 2010Q3

REPORT INFORMATION
  Report Type: 
  Country: None (occurrence: None)
  Receive Date: 20100713
  Receipt Date: 20100701
  Transmission Date: 20110219
  Serious: Yes (Other)
  Sender: FDA-Public Use
  Company Number: PHHY2010US34127

PATIENT
  Sex: Male

DRUGS (4)
  1. SANDOSTATIN LAR [Suspect]
     Indication: NEUROENDOCRINE TUMOUR
     Dosage: UNK
     Dates: start: 19991201
  2. AMBIEN [Concomitant]
  3. AMITRIPTYLINE HYDROCHLORIDE [Concomitant]
  4. VITAMIN D [Concomitant]

REACTIONS (4)
  - GASTRECTOMY [None]
  - GASTRIC ULCER [None]
  - HALLUCINATION, TACTILE [None]
  - SOMNAMBULISM [None]
